FAERS Safety Report 4688955-1 (Version None)
Quarter: 2005Q2

REPORT INFORMATION
  Report Type: 
  Country: None (occurrence: None)
  Receive Date: 20050613
  Receipt Date: 20050601
  Transmission Date: 20051028
  Serious: Yes (Hospitalization)
  Sender: FDA-Public Use
  Company Number: JP-ROCHE-406319

PATIENT
  Age: 21 Year
  Sex: Female

DRUGS (5)
  1. NICARDIPINE HCL [Suspect]
     Route: 041
     Dates: start: 20050512, end: 20050512
  2. NICARDIPINE HCL [Suspect]
     Dosage: TAKERN WITH CORTICOSTEROIDS.
     Route: 041
     Dates: start: 20050513
  3. CORTICOSTEROIDS [Suspect]
     Indication: DRUG USE FOR UNKNOWN INDICATION
     Route: 065
  4. SALBUTAMOL [Suspect]
     Dosage: ROUTE REPORTED AS ^RC.^
     Route: 065
     Dates: start: 20050513, end: 20050513
  5. BETAMETHASONE [Concomitant]
     Route: 030
     Dates: start: 20050512, end: 20050513

REACTIONS (26)
  - ACUTE PULMONARY OEDEMA [None]
  - ACUTE RESPIRATORY DISTRESS SYNDROME [None]
  - ALBUMINURIA [None]
  - BLOOD CALCIUM DECREASED [None]
  - BLOOD ELECTROLYTES ABNORMAL [None]
  - BLOOD LACTATE DEHYDROGENASE INCREASED [None]
  - BLOOD MAGNESIUM DECREASED [None]
  - BLOOD PH INCREASED [None]
  - BLOOD PHOSPHORUS DECREASED [None]
  - BLOOD POTASSIUM DECREASED [None]
  - BLOOD PRESSURE DIASTOLIC DECREASED [None]
  - BLOOD UREA DECREASED [None]
  - BRAIN NATRIURETIC PEPTIDE INCREASED [None]
  - CARDIAC FAILURE [None]
  - COUGH [None]
  - DRUG EXPOSURE DURING PREGNANCY [None]
  - DYSPNOEA [None]
  - GALLOP RHYTHM PRESENT [None]
  - HAEMOGLOBIN DECREASED [None]
  - LEUKOCYTOSIS [None]
  - PCO2 DECREASED [None]
  - PO2 DECREASED [None]
  - RALES [None]
  - TACHYCARDIA [None]
  - TROPONIN INCREASED [None]
  - WHITE BLOOD CELL COUNT INCREASED [None]
